FAERS Safety Report 6273065-2 (Version None)
Quarter: 2009Q3

REPORT INFORMATION
  Report Type: 
  Country: None (occurrence: None)
  Receive Date: 20090720
  Receipt Date: 20090708
  Transmission Date: 20100115
  Serious: Yes (Hospitalization)
  Sender: FDA-Public Use
  Company Number: US-BAYER-200917283NA

PATIENT
  Age: 61 Year
  Sex: Female
  Weight: 103 kg

DRUGS (20)
  1. BETASERON [Suspect]
     Indication: RELAPSING-REMITTING MULTIPLE SCLEROSIS
     Route: 058
  2. VITAMIN B-12 [Concomitant]
  3. SPIRONOLACTONE [Concomitant]
  4. COPAXONE [Concomitant]
  5. ZAROXOLYN [Concomitant]
  6. LASIX [Concomitant]
  7. SYNTHROID [Concomitant]
  8. NEXIUM [Concomitant]
  9. VALIUM [Concomitant]
  10. KDUR [Concomitant]
  11. OXYCODONE [Concomitant]
  12. PERCOCET [Concomitant]
  13. MIRALAX [Concomitant]
  14. LYRICA [Concomitant]
  15. AMITIZA [Concomitant]
  16. BACLOFEN [Concomitant]
  17. PROZAC [Concomitant]
  18. POTASSIUM CHLORIDE [Concomitant]
  19. THIAMINE HCL [Concomitant]
  20. THORAZINE [Concomitant]

REACTIONS (1)
  - BLOOD POTASSIUM DECREASED [None]
